FAERS Safety Report 7777070-6 (Version None)
Quarter: 2011Q3

REPORT INFORMATION
  Report Type: 
  Country: None (occurrence: None)
  Receive Date: 20110926
  Receipt Date: 20110926
  Transmission Date: 20111222
  Serious: No
  Sender: FDA-Public Use
  Company Number: None

PATIENT
  Age: 44 Year
  Sex: Female
  Weight: 54.431 kg

DRUGS (1)
  1. DEPO-PROVERA [Suspect]
     Dosage: INJECTION EVERY 12 WEEKS

REACTIONS (1)
  - ALOPECIA [None]
